FAERS Safety Report 8344553-X (Version None)
Quarter: 2012Q2

REPORT INFORMATION
  Report Type: 
  Country: None (occurrence: None)
  Receive Date: 20120508
  Receipt Date: 20120427
  Transmission Date: 20120825
  Serious: Yes (Death)
  Sender: FDA-Public Use
  Company Number: DE-ROCHE-1064253

PATIENT
  Sex: Male
  Weight: 72 kg

DRUGS (6)
  1. CARBOPLATIN [Concomitant]
     Indication: LUNG ADENOCARCINOMA METASTATIC
     Route: 042
     Dates: start: 20120412
  2. AVASTIN [Suspect]
     Indication: LUNG ADENOCARCINOMA METASTATIC
     Route: 042
     Dates: start: 20120412
  3. ASPIRIN [Concomitant]
     Indication: ARTERIOSCLEROSIS
     Route: 048
     Dates: start: 20120426
  4. CARBOPLATIN [Concomitant]
     Dates: start: 20120414
  5. PEMETREXED [Concomitant]
     Indication: LUNG ADENOCARCINOMA METASTATIC
     Route: 042
     Dates: start: 20120412
  6. BISOPROLOL FUMARATE [Concomitant]
     Indication: HYPERTENSION
     Route: 048
     Dates: start: 20120426

REACTIONS (2)
  - HAEMOPTYSIS [None]
  - CARDIAC ARREST [None]
